FAERS Safety Report 9878891 (Version 1)
Quarter: 2014Q1

REPORT INFORMATION
  Report Type: Spontaneous
  Country: US (occurrence: US)
  Receive Date: 20140206
  Receipt Date: 20140206
  Transmission Date: 20141002
  Serious: No
  Sender: FDA-Public Use
  Company Number: US-ALLERGAN-1310079US

PATIENT
  Sex: Female

DRUGS (4)
  1. BOTOX COSMETIC [Suspect]
     Indication: SKIN WRINKLING
     Dosage: 6 UNITS, SINGLE
     Route: 030
     Dates: start: 20130612, end: 20130612
  2. BOTOX COSMETIC [Suspect]
     Indication: SKIN WRINKLING
     Dosage: 6 UNITS, SINGLE
     Route: 030
     Dates: start: 20130612, end: 20130612
  3. BOTOX COSMETIC [Suspect]
     Indication: SKIN WRINKLING
     Dosage: 12 UNITS, SINGLE
     Route: 030
     Dates: start: 20130612, end: 20130612
  4. BOTOX COSMETIC [Suspect]
     Dosage: 12 UNITS, SINGLE
     Route: 030
     Dates: start: 20130612, end: 20130612

REACTIONS (1)
  - Therapeutic response decreased [Unknown]
